FAERS Safety Report 14317838 (Version 1)
Quarter: 2017Q4

REPORT INFORMATION
  Report Type: Spontaneous
  Country: US (occurrence: US)
  Receive Date: 20171221
  Receipt Date: 20171221
  Transmission Date: 20180321
  Serious: Yes (Other)
  Sender: FDA-Public Use
  Company Number: None

PATIENT
  Age: 58 Year
  Sex: Female
  Weight: 86.4 kg

DRUGS (16)
  1. METFORMIN [Concomitant]
     Active Substance: METFORMIN HYDROCHLORIDE
  2. OMEPRAZOLE. [Concomitant]
     Active Substance: OMEPRAZOLE
  3. CAPTOPRIL. [Concomitant]
     Active Substance: CAPTOPRIL
  4. PROPRANOLOL [Concomitant]
     Active Substance: PROPRANOLOL HYDROCHLORIDE
  5. ZOLPIDEM [Concomitant]
     Active Substance: ZOLPIDEM\ZOLPIDEM TARTRATE
  6. VENLAFAXINE [Concomitant]
     Active Substance: VENLAFAXINE HYDROCHLORIDE
  7. LEVAMIR [Concomitant]
  8. HYOSCYAMINE. [Concomitant]
     Active Substance: HYOSCYAMINE
  9. OXYCONTIN [Concomitant]
     Active Substance: OXYCODONE HYDROCHLORIDE
  10. CARISOPRODOL. [Concomitant]
     Active Substance: CARISOPRODOL
  11. LEVOTHYROXINE. [Concomitant]
     Active Substance: LEVOTHYROXINE
  12. LYRICA [Concomitant]
     Active Substance: PREGABALIN
  13. CLONAZEPAM. [Concomitant]
     Active Substance: CLONAZEPAM
  14. SIMVASTATIN. [Concomitant]
     Active Substance: SIMVASTATIN
  15. TRULICITY [Suspect]
     Active Substance: DULAGLUTIDE
     Indication: BLOOD GLUCOSE INCREASED
     Dosage: ?          OTHER FREQUENCY:ONCE A WEEK INJECT;?
     Route: 030
  16. OXYCODONE [Concomitant]
     Active Substance: OXYCODONE

REACTIONS (15)
  - Abdominal pain upper [None]
  - Dyspepsia [None]
  - Muscle spasms [None]
  - Tremor [None]
  - Haematochezia [None]
  - Eructation [None]
  - Gastrointestinal pain [None]
  - Constipation [None]
  - Diarrhoea [None]
  - Gastrooesophageal reflux disease [None]
  - Abdominal distension [None]
  - Feeling cold [None]
  - Gastrointestinal disorder [None]
  - Nausea [None]
  - Blood glucose increased [None]

NARRATIVE: CASE EVENT DATE: 20171214
